FAERS Safety Report 5928202-3 (Version None)
Quarter: 2008Q4

REPORT INFORMATION
  Report Type: 
  Country: None (occurrence: None)
  Receive Date: 20081023
  Receipt Date: 20081016
  Transmission Date: 20090506
  Serious: Yes (Other)
  Sender: FDA-Public Use
  Company Number: PHBS2008DE06074

PATIENT
  Age: 13 Year
  Sex: Female

DRUGS (2)
  1. METOPROLOL SUCCINATE [Suspect]
     Indication: VENTRICULAR TACHYCARDIA
     Dosage: 100 MG/DAY
     Route: 065
  2. ESMOLOL HCL [Suspect]
     Indication: VENTRICULAR TACHYCARDIA
     Route: 042

REACTIONS (7)
  - BUNDLE BRANCH BLOCK LEFT [None]
  - CARDIAC ABLATION [None]
  - DIZZINESS [None]
  - MYOCARDITIS [None]
  - OEDEMA [None]
  - PALPITATIONS [None]
  - VENTRICULAR TACHYCARDIA [None]
